FAERS Safety Report 14248310 (Version 4)
Quarter: 2018Q1

REPORT INFORMATION
  Report Type: Spontaneous
  Country: BR (occurrence: BR)
  Receive Date: 20171204
  Receipt Date: 20180130
  Transmission Date: 20180508
  Serious: Yes (Other)
  Sender: FDA-Public Use
  Company Number: BR-009507513-2009SP026291

PATIENT
  Age: 29 Year
  Sex: Female
  Weight: 54 kg

DRUGS (8)
  1. CERAZETTE [Suspect]
     Active Substance: DESOGESTREL
     Indication: CONTRACEPTION
     Dosage: UNKNOWN
     Route: 048
     Dates: start: 200709, end: 200809
  2. CERAZETTE [Suspect]
     Active Substance: DESOGESTREL
     Dosage: UNK
     Route: 048
     Dates: start: 201208
  3. CERAZETTE [Suspect]
     Active Substance: DESOGESTREL
     Dosage: UNKNOWN
     Route: 048
     Dates: start: 200811
  4. CERAZETTE [Suspect]
     Active Substance: DESOGESTREL
     Dosage: UNKNOWN
     Route: 048
     Dates: start: 200912
  5. CERAZETTE [Suspect]
     Active Substance: DESOGESTREL
     Dosage: UNKNOWN
     Route: 048
     Dates: start: 201008
  6. NUVARING [Suspect]
     Active Substance: ETHINYL ESTRADIOL\ETONOGESTREL
     Indication: CONTRACEPTION
     Dosage: 1 VAGINAL RING, 3 WEEK USE AND 1 WEEK PAUSE
     Route: 067
     Dates: start: 201701
  7. PRILOSEC [Concomitant]
     Active Substance: OMEPRAZOLE MAGNESIUM
     Indication: PROPHYLAXIS
     Dosage: (UPDATE: 28NOV2011)
     Route: 048
     Dates: start: 2011
  8. CERAZETTE [Suspect]
     Active Substance: DESOGESTREL
     Dosage: 1 TABLET ONCE A DAY
     Route: 048
     Dates: start: 201601, end: 201604

REACTIONS (19)
  - Amenorrhoea [Recovered/Resolved]
  - Acne [Not Recovered/Not Resolved]
  - Pharyngitis [Not Recovered/Not Resolved]
  - Cystitis [Not Recovered/Not Resolved]
  - Swelling [Not Recovered/Not Resolved]
  - Amenorrhoea [Not Recovered/Not Resolved]
  - Weight increased [Not Recovered/Not Resolved]
  - Vulvovaginal discomfort [Recovering/Resolving]
  - Oropharyngeal pain [Not Recovered/Not Resolved]
  - Vaginal haemorrhage [Recovered/Resolved]
  - Menstrual disorder [Recovered/Resolved]
  - Menstrual disorder [Recovered/Resolved]
  - Fluid retention [Unknown]
  - Vaginal discharge [Recovering/Resolving]
  - Menstruation delayed [Recovered/Resolved]
  - Urinary tract infection bacterial [Recovered/Resolved]
  - Headache [Unknown]
  - Vulvovaginal pruritus [Recovering/Resolving]
  - Menstruation delayed [Unknown]

NARRATIVE: CASE EVENT DATE: 200709
